FAERS Safety Report 8276773-7 (Version None)
Quarter: 2012Q2

REPORT INFORMATION
  Report Type: 
  Country: None (occurrence: None)
  Receive Date: 20120412
  Receipt Date: 20120405
  Transmission Date: 20120825
  Serious: No
  Sender: FDA-Public Use
  Company Number: US-PFIZER INC-2012086986

PATIENT
  Sex: Male

DRUGS (4)
  1. NEURONTIN [Suspect]
     Dosage: 300 MG, 3X/DAY
  2. NOVOLOG [Concomitant]
     Dosage: UNK
  3. CYMBALTA [Concomitant]
     Dosage: UNK
  4. INSULIN DETEMIR [Concomitant]
     Dosage: UNK

REACTIONS (1)
  - GENERAL PHYSICAL HEALTH DETERIORATION [None]
